FAERS Safety Report 5302132-2 (Version None)
Quarter: 2007Q2

REPORT INFORMATION
  Report Type: 
  Country: None (occurrence: None)
  Receive Date: 20070419
  Receipt Date: 20070416
  Transmission Date: 20071010
  Serious: Yes (Life-Threatening, Disabling)
  Sender: FDA-Public Use
  Company Number: US-SOLVAY-00207001218

PATIENT
  Age: 15814 Day
  Sex: Male
  Weight: 71 kg

DRUGS (1)
  1. ANDROGEL [Suspect]
     Indication: HYPOGONADISM
     Dosage: DAILY DOSE: 5 GRAM(S)
     Route: 062
     Dates: start: 20060831, end: 20070401

REACTIONS (1)
  - LYMPHOMA [None]
